FAERS Safety Report 18062586 (Version 4)
Quarter: 2021Q2

REPORT INFORMATION
  Report Type: Report from Study
  Country: JP (occurrence: JP)
  Receive Date: 20200724
  Receipt Date: 20210427
  Transmission Date: 20210717
  Serious: Yes (Other)
  Sender: FDA-Public Use
  Company Number: JP-CELLTRION INC.-2020JP024524

PATIENT

DRUGS (55)
  1. CT?P6 [Suspect]
     Active Substance: INVESTIGATIONAL BIOSIMILARS
     Dosage: 400 MG, QD
     Route: 041
     Dates: start: 20200803, end: 20200803
  2. CT?P6 [Suspect]
     Active Substance: INVESTIGATIONAL BIOSIMILARS
     Dosage: 400 MG, QD
     Route: 041
     Dates: start: 20210322, end: 20210322
  3. TEGAFUR GIMERACIL AND OTERACIL POTASSIUM [Suspect]
     Active Substance: GIMERACIL\OTERACIL\TEGAFUR
     Dosage: 50 MG, QD
     Route: 048
     Dates: start: 20200511, end: 20200525
  4. TEGAFUR GIMERACIL AND OTERACIL POTASSIUM [Suspect]
     Active Substance: GIMERACIL\OTERACIL\TEGAFUR
     Dosage: 50 MG, QD
     Route: 048
     Dates: start: 20200622, end: 20200706
  5. TEGAFUR GIMERACIL AND OTERACIL POTASSIUM [Suspect]
     Active Substance: GIMERACIL\OTERACIL\TEGAFUR
     Dosage: 50 MG, QD
     Route: 048
     Dates: start: 20200713, end: 20200727
  6. CT?P6 [Suspect]
     Active Substance: INVESTIGATIONAL BIOSIMILARS
     Dosage: 400 MG, QD
     Route: 041
     Dates: start: 20210118, end: 20210118
  7. TEGAFUR GIMERACIL AND OTERACIL POTASSIUM [Suspect]
     Active Substance: GIMERACIL\OTERACIL\TEGAFUR
     Dosage: 50 MG, QD
     Route: 048
     Dates: start: 20200601, end: 20200615
  8. AMLODIPINE [Concomitant]
     Active Substance: AMLODIPINE BESYLATE
     Indication: HYPERTENSION
     Dosage: UNK
  9. MOHRUS [Concomitant]
     Active Substance: KETOPROFEN
     Indication: SPINAL STENOSIS
     Dosage: UNK
  10. ENORAS [Concomitant]
     Indication: MALNUTRITION
     Dosage: UNK
     Dates: start: 20200511
  11. CT?P6 [Suspect]
     Active Substance: INVESTIGATIONAL BIOSIMILARS
     Dosage: 400 MG, QD
     Route: 041
     Dates: start: 20210208, end: 20210208
  12. OXALIPLATIN. [Suspect]
     Active Substance: OXALIPLATIN
     Indication: HER2 POSITIVE GASTRIC CANCER
     Dosage: 120 MG, QD
     Route: 041
     Dates: start: 20200323, end: 20200323
  13. TEGAFUR GIMERACIL AND OTERACIL POTASSIUM [Suspect]
     Active Substance: GIMERACIL\OTERACIL\TEGAFUR
     Dosage: 50 MG, QD
     Route: 048
     Dates: start: 20201228, end: 20210111
  14. TEGAFUR GIMERACIL AND OTERACIL POTASSIUM [Suspect]
     Active Substance: GIMERACIL\OTERACIL\TEGAFUR
     Dosage: 50 MG, QD
     Route: 048
     Dates: start: 20210208, end: 20210222
  15. TEGAFUR GIMERACIL AND OTERACIL POTASSIUM [Suspect]
     Active Substance: GIMERACIL\OTERACIL\TEGAFUR
     Dosage: 50 MG, QD
     Route: 048
     Dates: start: 20210322, end: 20210405
  16. MECOBALAMIN [Concomitant]
     Active Substance: METHYLCOBALAMIN
     Indication: SPINAL LIGAMENT OSSIFICATION
     Dosage: UNK
  17. ELENTAL [Concomitant]
     Active Substance: AMINO ACIDS\CARBOHYDRATES\MINERALS\SOYBEAN OIL\VITAMINS
     Indication: MALNUTRITION
     Dosage: UNK
     Dates: end: 20200510
  18. EMEND [Concomitant]
     Active Substance: APREPITANT
     Indication: PROPHYLAXIS
     Dosage: UNK
     Dates: end: 20200325
  19. DECADRON [Concomitant]
     Active Substance: DEXAMETHASONE
     Indication: PROPHYLAXIS
     Dosage: UNK
     Dates: end: 20200325
  20. CT?P6 [Suspect]
     Active Substance: INVESTIGATIONAL BIOSIMILARS
     Dosage: 270 MG, QD
     Route: 041
     Dates: start: 20200413, end: 20200413
  21. CT?P6 [Suspect]
     Active Substance: INVESTIGATIONAL BIOSIMILARS
     Dosage: 270 MG, QD
     Route: 041
     Dates: start: 20200511, end: 20200511
  22. CT?P6 [Suspect]
     Active Substance: INVESTIGATIONAL BIOSIMILARS
     Dosage: 400 MG, QD
     Route: 041
     Dates: start: 20200713, end: 20200713
  23. CT?P6 [Suspect]
     Active Substance: INVESTIGATIONAL BIOSIMILARS
     Dosage: 400 MG, QD
     Route: 041
     Dates: start: 20201207, end: 20201207
  24. TEGAFUR GIMERACIL AND OTERACIL POTASSIUM [Suspect]
     Active Substance: GIMERACIL\OTERACIL\TEGAFUR
     Dosage: 50 MG, QD
     Route: 048
     Dates: start: 20201005, end: 20201019
  25. TEGAFUR GIMERACIL AND OTERACIL POTASSIUM [Suspect]
     Active Substance: GIMERACIL\OTERACIL\TEGAFUR
     Dosage: 50 MG, QD
     Route: 048
     Dates: start: 20210301, end: 20210315
  26. ARGAMATE [Concomitant]
     Active Substance: CALCIUM POLYSTYRENE SULFONATE
     Indication: HYPERKALAEMIA
     Dosage: UNK
  27. CT?P6 [Suspect]
     Active Substance: INVESTIGATIONAL BIOSIMILARS
     Dosage: 400 MG, QD
     Route: 041
     Dates: start: 20210301, end: 20210301
  28. TEGAFUR GIMERACIL AND OTERACIL POTASSIUM [Suspect]
     Active Substance: GIMERACIL\OTERACIL\TEGAFUR
     Dosage: 50 MG, QD
     Route: 048
  29. TEGAFUR GIMERACIL AND OTERACIL POTASSIUM [Suspect]
     Active Substance: GIMERACIL\OTERACIL\TEGAFUR
     Dosage: 50 MG, QD
     Route: 048
  30. HIRUDOID [Concomitant]
     Active Substance: GLYCOSAMINOGLYCANS
     Indication: ASTEATOSIS
     Dosage: UNK
     Dates: end: 20210228
  31. AZUNOL GARGLE LIQUID [Concomitant]
     Active Substance: SODIUM GUALENATE MONOHYDRATE
     Indication: PROPHYLAXIS
     Dosage: UNK
     Dates: end: 20200530
  32. BESOFTEN [Concomitant]
     Active Substance: PENTOSAN POLYSULFATE SODIUM
     Dosage: UNK
     Dates: start: 20210301
  33. CT?P6 [Suspect]
     Active Substance: INVESTIGATIONAL BIOSIMILARS
     Dosage: 260 MG, QD
     Route: 041
     Dates: start: 20200622, end: 20200622
  34. CT?P6 [Suspect]
     Active Substance: INVESTIGATIONAL BIOSIMILARS
     Dosage: 400 MG, QD
     Route: 041
     Dates: start: 20200824, end: 20200824
  35. CT?P6 [Suspect]
     Active Substance: INVESTIGATIONAL BIOSIMILARS
     Dosage: 400 MG, QD
     Route: 041
     Dates: start: 20201116, end: 20201116
  36. CT?P6 [Suspect]
     Active Substance: INVESTIGATIONAL BIOSIMILARS
     Dosage: 400 MG, QD
     Route: 041
     Dates: start: 20201228, end: 20201228
  37. CT?P6 [Suspect]
     Active Substance: INVESTIGATIONAL BIOSIMILARS
     Dosage: 400 MG, QD
     Route: 041
     Dates: start: 20210412, end: 20210412
  38. TEGAFUR GIMERACIL AND OTERACIL POTASSIUM [Suspect]
     Active Substance: GIMERACIL\OTERACIL\TEGAFUR
     Dosage: 50 MG, QD
     Route: 048
     Dates: start: 20210118, end: 20210201
  39. CYMBALTA [Concomitant]
     Active Substance: DULOXETINE HYDROCHLORIDE
     Indication: SPINAL STENOSIS
     Dosage: UNK
  40. PRIMPERAN [Concomitant]
     Active Substance: METOCLOPRAMIDE HYDROCHLORIDE
     Indication: PROPHYLAXIS
     Dosage: UNK
     Dates: end: 20200601
  41. AMITIZA [Concomitant]
     Active Substance: LUBIPROSTONE
     Indication: CONSTIPATION
     Dosage: UNK
     Dates: start: 20200413, end: 20200712
  42. POLAPREZINC OD [Concomitant]
     Active Substance: POLAPREZINC
     Indication: TASTE DISORDER
     Dosage: UNK
     Dates: start: 20200413, end: 20200712
  43. CT?P6 [Suspect]
     Active Substance: INVESTIGATIONAL BIOSIMILARS
     Dosage: 260 MG, QD
     Route: 041
     Dates: start: 20200601, end: 20200601
  44. CT?P6 [Suspect]
     Active Substance: INVESTIGATIONAL BIOSIMILARS
     Dosage: 400 MG, QD
     Route: 041
     Dates: start: 20201026, end: 20201026
  45. TEGAFUR GIMERACIL AND OTERACIL POTASSIUM [Suspect]
     Active Substance: GIMERACIL\OTERACIL\TEGAFUR
     Dosage: 50 MG, QD
     Route: 048
     Dates: start: 20201116, end: 20201130
  46. TEGAFUR GIMERACIL AND OTERACIL POTASSIUM [Suspect]
     Active Substance: GIMERACIL\OTERACIL\TEGAFUR
     Dosage: 50 MG, QD
     Route: 048
     Dates: start: 20210412
  47. BARACLUDE [Concomitant]
     Active Substance: ENTECAVIR
     Indication: HEPATITIS B
     Dosage: UNK
     Dates: start: 20200303
  48. DOMPERIDONE [Concomitant]
     Active Substance: DOMPERIDONE
     Indication: MALNUTRITION
     Dosage: UNK
     Dates: end: 20201026
  49. CT?P6 [Suspect]
     Active Substance: INVESTIGATIONAL BIOSIMILARS
     Indication: HER2 POSITIVE GASTRIC CANCER
     Dosage: 400 MG, QD
     Route: 041
     Dates: start: 20200323, end: 20200323
  50. CT?P6 [Suspect]
     Active Substance: INVESTIGATIONAL BIOSIMILARS
     Dosage: 400 MG, QD
     Route: 041
     Dates: start: 20200914, end: 20200914
  51. CT?P6 [Suspect]
     Active Substance: INVESTIGATIONAL BIOSIMILARS
     Dosage: 400 MG, QD
     Route: 041
     Dates: start: 20201005, end: 20201005
  52. TEGAFUR GIMERACIL AND OTERACIL POTASSIUM [Suspect]
     Active Substance: GIMERACIL\OTERACIL\TEGAFUR
     Indication: HER2 POSITIVE GASTRIC CANCER
     Dosage: 50 MG, QD
     Route: 048
     Dates: start: 20200323, end: 20200406
  53. TEGAFUR GIMERACIL AND OTERACIL POTASSIUM [Suspect]
     Active Substance: GIMERACIL\OTERACIL\TEGAFUR
     Dosage: 50 MG, QD
     Route: 048
  54. TEGAFUR GIMERACIL AND OTERACIL POTASSIUM [Suspect]
     Active Substance: GIMERACIL\OTERACIL\TEGAFUR
     Dosage: 50 MG, QD
     Route: 048
     Dates: start: 20201026, end: 20201109
  55. TEGAFUR GIMERACIL AND OTERACIL POTASSIUM [Suspect]
     Active Substance: GIMERACIL\OTERACIL\TEGAFUR
     Dosage: 50 MG, QD
     Route: 048
     Dates: start: 20201207, end: 20201221

REACTIONS (14)
  - Altered state of consciousness [Recovered/Resolved]
  - Cardiac disorder [Not Recovered/Not Resolved]
  - Off label use [Unknown]
  - Overdose [Unknown]
  - Malaise [Recovered/Resolved]
  - Anaemia [Not Recovered/Not Resolved]
  - Malnutrition [Recovering/Resolving]
  - Hyperkalaemia [Recovering/Resolving]
  - Condition aggravated [Recovering/Resolving]
  - Underdose [Unknown]
  - Decreased appetite [Recovered/Resolved]
  - Erythema [Recovering/Resolving]
  - Epistaxis [Recovering/Resolving]
  - Nausea [Recovered/Resolved]

NARRATIVE: CASE EVENT DATE: 20200323
